FAERS Safety Report 4288651-9 (Version None)
Quarter: 2004Q1

REPORT INFORMATION
  Report Type: 
  Country: None (occurrence: None)
  Receive Date: 20040205
  Receipt Date: 20040112
  Transmission Date: 20041129
  Serious: Yes (Death)
  Sender: FDA-Public Use
  Company Number: F01200301571

PATIENT
  Age: 76 Year
  Sex: Male

DRUGS (10)
  1. (OXALIPLATIN) - SOLUTION - 181 MG [Suspect]
     Indication: COLORECTAL CANCER METASTATIC
     Dosage: 181 MG Q3W; INTRAVENOUS NOS
     Route: 042
     Dates: start: 20031217, end: 20031217
  2. FLUOROURACIL [Suspect]
     Dosage: 1278 MG IV CONTINOUS INFUSION ON D1-D2 Q3W INTRAVENOUS NOS
     Route: 042
     Dates: start: 20031217, end: 20031217
  3. (LEUCOVORIN) - SOLUTION- 426 MG [Suspect]
     Dosage: 426 MG Q3W; INTRAVENOUS NOS
     Route: 042
     Dates: start: 20031217, end: 20031217
  4. COUMADIN [Concomitant]
  5. COLCHICINE  HYDROCHLOROTHIAZIDE [Concomitant]
  6. AMILORIDE [Concomitant]
  7. METHYLDOPA [Concomitant]
  8. COMPAZINE [Concomitant]
  9. PERCOCET (OXYCODONE HCL+ PARACETAMOL) [Concomitant]
  10. FLEXARIL (CYCLOBENZAPRINE HCL) [Concomitant]

REACTIONS (17)
  - ABDOMINAL PAIN [None]
  - ACUTE RESPIRATORY DISTRESS SYNDROME [None]
  - BACTERAEMIA [None]
  - BLOOD CREATININE INCREASED [None]
  - DEHYDRATION [None]
  - GLUCOSE URINE PRESENT [None]
  - HYPERTENSION [None]
  - HYPOTENSION [None]
  - HYPOVOLAEMIC SHOCK [None]
  - ILEUS [None]
  - MENTAL STATUS CHANGES [None]
  - MULTI-ORGAN FAILURE [None]
  - NAUSEA [None]
  - PROTEIN URINE [None]
  - RED BLOOD CELLS URINE [None]
  - SINUS TACHYCARDIA [None]
  - VOMITING [None]
